FAERS Safety Report 10235897 (Version 1)
Quarter: 2014Q2

REPORT INFORMATION
  Report Type: Spontaneous
  Country: HR (occurrence: HR)
  Receive Date: 20140613
  Receipt Date: 20140613
  Transmission Date: 20141212
  Serious: Yes (Death)
  Sender: FDA-Public Use
  Company Number: HR-ABBVIE-14K-216-1246031-00

PATIENT
  Sex: 0

DRUGS (2)
  1. ZEMPLAR [Suspect]
     Indication: RENAL FAILURE CHRONIC
  2. ZEMPLAR [Suspect]
     Indication: DIALYSIS

REACTIONS (1)
  - Cardiovascular disorder [Fatal]
